FAERS Safety Report 4762899-9 (Version None)
Quarter: 2005Q3

REPORT INFORMATION
  Report Type: 
  Country: None (occurrence: None)
  Receive Date: 20050907
  Receipt Date: 20050902
  Transmission Date: 20060218
  Serious: Yes (Other)
  Sender: FDA-Public Use
  Company Number: PHBS2005IE12914

PATIENT

DRUGS (1)
  1. ZOMETA [Suspect]
     Indication: METASTASIS
     Dosage: 4 MG, QMO
     Route: 042

REACTIONS (2)
  - ASEPTIC NECROSIS BONE [None]
  - TOOTH EXTRACTION [None]
